FAERS Safety Report 8550141 (Version 6)
Quarter: 2013Q2

REPORT INFORMATION
  Report Type: Spontaneous
  Country: US (occurrence: US)
  Receive Date: 20120507
  Receipt Date: 20130426
  Transmission Date: 20140414
  Serious: Yes (Other)
  Sender: FDA-Public Use
  Company Number: US-PFIZER INC-2012109064

PATIENT
  Age: 83 Year
  Sex: Female

DRUGS (8)
  1. LYRICA [Suspect]
     Indication: PAIN
     Dosage: 100 MG, 2X/DAY
     Route: 048
     Dates: start: 201112
  2. LYRICA [Suspect]
     Dosage: 50MG IN MORNING AND 100MG AT NIGHT
     Dates: start: 2012
  3. CLONIDINE [Concomitant]
     Indication: HYPERTENSION
     Dosage: 0.1 MG IN MORNING AND 0.2MG AT NIGHT
  4. DIOVAN (VALSARTAN) [Concomitant]
     Indication: HYPERTENSION
     Dosage: 320 MG, 1X/DAY
  5. POTASSIUM CHLORIDE [Concomitant]
     Indication: HYPERTENSION
     Dosage: 10 MEQ, 1X/DAY
  6. HYDROCHLOROTHIAZIDE [Concomitant]
     Indication: HYPERTENSION
     Dosage: 25 MG, 1X/DAY
  7. AMLODIPINE [Concomitant]
     Indication: HYPERTENSION
     Dosage: 5 MG, 1X/DAY
  8. SIMVASTATIN [Concomitant]
     Indication: BLOOD CHOLESTEROL INCREASED
     Dosage: 1 MG, 1X/DAY

REACTIONS (12)
  - Umbilical hernia [Recovered/Resolved]
  - Ovarian disorder [Recovered/Resolved]
  - Uterine disorder [Recovered/Resolved]
  - Pain [Recovered/Resolved]
  - Weight decreased [Recovered/Resolved]
  - Intentional drug misuse [Recovered/Resolved]
  - Myalgia [Recovered/Resolved]
  - Bone pain [Recovered/Resolved]
  - Somnolence [Recovered/Resolved]
  - Abdominal pain upper [Recovered/Resolved]
  - Nightmare [Recovered/Resolved]
  - Hearing impaired [Recovered/Resolved]
